FAERS Safety Report 8648740 (Version 2)
Quarter: 2012Q4

REPORT INFORMATION
  Report Type: 
  Country: US (occurrence: US)
  Receive Date: 20120703
  Receipt Date: 20121008
  Transmission Date: 20130627
  Serious: No
  Sender: FDA-Public Use
  Company Number: US-PFIZER INC-2012156341

PATIENT
  Age: 52 Year
  Sex: Female
  Weight: 78.01 kg

DRUGS (6)
  1. CELEBREX [Suspect]
     Indication: BACK PAIN
     Dosage: 400 mg, 2x/day
     Route: 048
     Dates: start: 201206, end: 201206
  2. CELEBREX [Suspect]
     Indication: MUSCLE SPASMS
  3. CELEBREX [Suspect]
     Indication: HEADACHE
  4. IBUPROFEN [Suspect]
     Indication: BACK PAIN
     Dosage: 3600 mg, in a day
     Route: 048
     Dates: start: 201206, end: 201206
  5. IBUPROFEN [Suspect]
     Indication: HEADACHE
  6. ALBUTEROL [Concomitant]
     Indication: ASTHMA
     Dosage: unknown dose two puffs as needed

REACTIONS (6)
  - Bronchitis [Not Recovered/Not Resolved]
  - Gastrooesophageal reflux disease [Recovered/Resolved]
  - Nasopharyngitis [Not Recovered/Not Resolved]
  - Cough [Not Recovered/Not Resolved]
  - Incorrect dose administered [Unknown]
  - Drug ineffective [Unknown]
